FAERS Safety Report 21978053 (Version 1)
Quarter: 2023Q1

REPORT INFORMATION
  Report Type: Spontaneous
  Country: CA (occurrence: None)
  Receive Date: 20230210
  Receipt Date: 20230210
  Transmission Date: 20230418
  Serious: Yes (Other)
  Sender: FDA-Public Use
  Company Number: 2023A033244

PATIENT
  Age: 53 Year
  Sex: Male
  Weight: 82 kg

DRUGS (4)
  1. EVUSHELD [Suspect]
     Active Substance: CILGAVIMAB\TIXAGEVIMAB
     Indication: COVID-19 immunisation
     Dosage: 1 VIAL TIXAGEVIMAB / 1 VIAL CILGAVIMAB300.0MG ONCE/SINGLE ADMINISTRATION
     Route: 030
  2. EBASTINE [Concomitant]
     Active Substance: EBASTINE
  3. INSULIN NOS [Concomitant]
     Active Substance: INSULIN NOS
  4. ROSUVASTATIN [Concomitant]
     Active Substance: ROSUVASTATIN

REACTIONS (1)
  - Blood glucose increased [Not Recovered/Not Resolved]
